FAERS Safety Report 9825610 (Version 1)
Quarter: 2013Q4

REPORT INFORMATION
  Report Type: Spontaneous
  Country: US (occurrence: None)
  Receive Date: 20131028
  Receipt Date: 20131028
  Transmission Date: 20140711
  Serious: Yes (Other)
  Sender: FDA-Public Use
  Company Number: 2013US002340

PATIENT
  Age: 66 Year
  Sex: Female
  Weight: 77 kg

DRUGS (3)
  1. ICLUSIG [Suspect]
     Indication: ACUTE LYMPHOCYTIC LEUKAEMIA (IN REMISSION)
     Route: 048
     Dates: start: 20130618
  2. ICLUSIG [Suspect]
     Indication: CHROMOSOME ANALYSIS ABNORMAL
     Route: 048
     Dates: start: 20130618
  3. INSULIN REGULAR(INSULIN PORCINE) [Concomitant]

REACTIONS (11)
  - Blood glucose increased [None]
  - Dry mouth [None]
  - Chest pain [None]
  - Fall [None]
  - Dyspnoea [None]
  - Dizziness [None]
  - Vomiting [None]
  - Fatigue [None]
  - Nausea [None]
  - Headache [None]
  - Constipation [None]
